FAERS Safety Report 10946257 (Version 1)
Quarter: 2015Q1

REPORT INFORMATION
  Report Type: Spontaneous
  Country: JP (occurrence: JP)
  Receive Date: 20150323
  Receipt Date: 20150323
  Transmission Date: 20150721
  Serious: Yes (Life-Threatening, Hospitalization)
  Sender: FDA-Public Use
  Company Number: JP-ASTRAZENECA-2015SE25595

PATIENT
  Age: 77 Year
  Sex: Male
  Weight: 71 kg

DRUGS (8)
  1. GENINAX [Suspect]
     Active Substance: GARENOXACIN MESYLATE
     Indication: BRONCHITIS
     Route: 048
     Dates: start: 20141129, end: 20141201
  2. CRESTOR [Suspect]
     Active Substance: ROSUVASTATIN CALCIUM
     Indication: HYPERCHOLESTEROLAEMIA
     Route: 048
     Dates: end: 20141201
  3. ADALAT CC [Concomitant]
     Active Substance: NIFEDIPINE
     Dosage: DOSE UNKNOWN
     Route: 048
  4. HUSCODE [Concomitant]
     Active Substance: CHLORPHENIRAMINE MALEAT\DIHYDROCODEINE PHOSPHATE\METHYLEPHEDRINE HYDROCHLORIDE, DL-
     Indication: BRONCHITIS
     Dosage: DOSE UNKNOWN
     Route: 065
     Dates: start: 20141129
  5. GLACTIV [Suspect]
     Active Substance: SITAGLIPTIN
     Indication: DIABETES MELLITUS
     Route: 048
     Dates: start: 20141201, end: 20141201
  6. MAINTATE [Concomitant]
     Active Substance: BISOPROLOL FUMARATE
     Indication: CARDIAC FAILURE
     Dosage: 0.625 MG, NUMBER OF SEPARATE DOSAGES UNKNOWN
     Route: 065
     Dates: start: 20141130
  7. MICARDIS [Concomitant]
     Active Substance: TELMISARTAN
     Dosage: DOSE UNKNOWN
     Route: 048
  8. SYMBICORT [Concomitant]
     Active Substance: BUDESONIDE\FORMOTEROL FUMARATE DIHYDRATE
     Dosage: DOSE UNKNOWN
     Route: 055

REACTIONS (3)
  - Cardiac failure [Unknown]
  - Bronchitis [Unknown]
  - Rhabdomyolysis [Recovered/Resolved]

NARRATIVE: CASE EVENT DATE: 20141130
